FAERS Safety Report 19359587 (Version 1)
Quarter: 2021Q2

REPORT INFORMATION
  Report Type: Spontaneous
  Country: CA (occurrence: CA)
  Receive Date: 20210601
  Receipt Date: 20210601
  Transmission Date: 20210717
  Serious: Yes (Life-Threatening, Hospitalization, Other)
  Sender: FDA-Public Use
  Company Number: CA-AXELLIA-003800

PATIENT
  Age: 32 Year
  Sex: Male

DRUGS (3)
  1. RIZATRIPTAN. [Concomitant]
     Active Substance: RIZATRIPTAN
     Indication: MIGRAINE
  2. VANCOMYCIN [Suspect]
     Active Substance: VANCOMYCIN
     Indication: GROIN ABSCESS
     Route: 041
  3. METHYLPHENIDATE. [Concomitant]
     Active Substance: METHYLPHENIDATE
     Indication: ATTENTION DEFICIT HYPERACTIVITY DISORDER

REACTIONS (5)
  - Kounis syndrome [Recovered/Resolved]
  - Hypokinesia [Recovered/Resolved]
  - Drug hypersensitivity [Recovered/Resolved]
  - Acute myocardial infarction [Recovered/Resolved]
  - Angina pectoris [Recovered/Resolved]
